FAERS Safety Report 6693233-5 (Version None)
Quarter: 2010Q2

REPORT INFORMATION
  Report Type: 
  Country: None (occurrence: None)
  Receive Date: 20100422
  Receipt Date: 20100408
  Transmission Date: 20101027
  Serious: Yes (Death, Other)
  Sender: FDA-Public Use
  Company Number: US-GENENTECH-300611

PATIENT

DRUGS (3)
  1. RITUXIMAB [Suspect]
     Indication: NON-HODGKIN'S LYMPHOMA
     Dosage: 375 MG/M2, Q4W
     Route: 065
  2. ETOPOSIDE [Concomitant]
     Indication: DRUG USE FOR UNKNOWN INDICATION
     Dosage: UNK
  3. CYCLOPHOSPHAMIDE [Concomitant]
     Indication: DRUG USE FOR UNKNOWN INDICATION
     Dosage: UNK

REACTIONS (6)
  - AMYOTROPHIC LATERAL SCLEROSIS [None]
  - COMPLETED SUICIDE [None]
  - HERPES ZOSTER DISSEMINATED [None]
  - LYMPHOMA [None]
  - NEUTROPENIA [None]
  - PNEUMONITIS [None]
